FAERS Safety Report 9929653 (Version 1)
Quarter: 2014Q1

REPORT INFORMATION
  Report Type: Spontaneous
  Country: US (occurrence: US)
  Receive Date: 20140227
  Receipt Date: 20140227
  Transmission Date: 20141002
  Serious: No
  Sender: FDA-Public Use
  Company Number: US-ASTRAZENECA-2014SE08598

PATIENT
  Age: 64 Year
  Sex: Female
  Weight: 43.1 kg

DRUGS (4)
  1. TOPROL-XL [Suspect]
     Indication: BLOOD PRESSURE ABNORMAL
     Route: 048
  2. TOPROL-XL [Suspect]
     Indication: BLOOD PRESSURE ABNORMAL
     Dosage: GENERIC, 50 MG DAILY
     Route: 048
  3. TOPROL-XL [Suspect]
     Indication: BLOOD PRESSURE ABNORMAL
     Route: 048
  4. B-12 [Concomitant]

REACTIONS (5)
  - Blood pressure inadequately controlled [Recovered/Resolved]
  - Coeliac disease [Unknown]
  - Iron deficiency [Unknown]
  - Dizziness [Recovered/Resolved]
  - Therapeutic response unexpected with drug substitution [Recovered/Resolved]
